APPROVED DRUG PRODUCT: DROXIDOPA
Active Ingredient: DROXIDOPA
Strength: 200MG
Dosage Form/Route: CAPSULE;ORAL
Application: A213033 | Product #002 | TE Code: AB
Applicant: BIONPHARMA INC
Approved: Apr 28, 2021 | RLD: No | RS: No | Type: RX